FAERS Safety Report 7413472-5 (Version None)
Quarter: 2011Q2

REPORT INFORMATION
  Report Type: 
  Country: None (occurrence: None)
  Receive Date: 20110413
  Receipt Date: 20110405
  Transmission Date: 20111010
  Serious: Yes (Other)
  Sender: FDA-Public Use
  Company Number: PHHY2009CA15416

PATIENT
  Sex: Female
  Weight: 56.689 kg

DRUGS (5)
  1. SANDOSTATIN LAR [Suspect]
     Dosage: 30 MG, QMO
     Route: 030
  2. SANDOSTATIN LAR [Suspect]
     Indication: CARCINOID SYNDROME
     Dosage: 30 MG, QMO
     Route: 030
     Dates: start: 20070310
  3. SANDOSTATIN LAR [Suspect]
     Dosage: 30 MG, EVERY 4 WEEKS
     Route: 030
     Dates: start: 20070320
  4. SANDOSTATIN [Suspect]
     Dosage: 0.75 ML, TID PRN
     Route: 058
  5. SANDOSTATIN [Suspect]
     Dosage: 0.75 ML, BID
     Route: 058

REACTIONS (15)
  - ABDOMINAL DISTENSION [None]
  - MUSCLE SPASMS [None]
  - HOT FLUSH [None]
  - INCORRECT ROUTE OF DRUG ADMINISTRATION [None]
  - VERTIGO [None]
  - MALAISE [None]
  - WEIGHT INCREASED [None]
  - MOOD SWINGS [None]
  - FATIGUE [None]
  - INCORRECT STORAGE OF DRUG [None]
  - THYROXINE INCREASED [None]
  - BLOOD THYROID STIMULATING HORMONE INCREASED [None]
  - OEDEMA PERIPHERAL [None]
  - DIARRHOEA [None]
  - FLUSHING [None]
